FAERS Safety Report 7711730-8 (Version None)
Quarter: 2011Q3

REPORT INFORMATION
  Report Type: 
  Country: None (occurrence: None)
  Receive Date: 20110826
  Receipt Date: 20110811
  Transmission Date: 20111222
  Serious: Yes (Other)
  Sender: FDA-Public Use
  Company Number: CA-UCBSA-037674

PATIENT
  Sex: Female
  Weight: 81 kg

DRUGS (10)
  1. FOLIC ACID [Concomitant]
     Route: 048
  2. METHOTREXATE [Concomitant]
     Indication: RHEUMATOID ARTHRITIS
     Route: 048
     Dates: start: 20101001
  3. PANTOLAC [Concomitant]
     Route: 048
  4. CIMZIA [Suspect]
     Indication: RHEUMATOID ARTHRITIS
     Dosage: 24/MAY/2011 TO 21/JUN/2011: 400MG ONCE IN TWO WEEKS
     Route: 058
     Dates: start: 20110705
  5. PREDNISONE [Concomitant]
     Indication: RHEUMATOID ARTHRITIS
     Route: 048
     Dates: start: 20110111
  6. CELEBREX [Concomitant]
     Indication: RHEUMATOID ARTHRITIS
     Route: 048
     Dates: start: 20101001
  7. PLAQUENIL [Concomitant]
     Indication: RHEUMATOID ARTHRITIS
     Route: 048
     Dates: start: 20101001
  8. SYNTHROID [Concomitant]
     Route: 048
  9. CIMZIA [Suspect]
     Indication: PSORIATIC ARTHROPATHY
     Dosage: 24/MAY/2011 TO 21/JUN/2011: 400MG ONCE IN TWO WEEKS
     Route: 058
     Dates: start: 20110705
  10. ACTONEL [Concomitant]
     Route: 048

REACTIONS (2)
  - VULVOVAGINAL MYCOTIC INFECTION [None]
  - ARTHRALGIA [None]
